FAERS Safety Report 6609982-0 (Version None)
Quarter: 2010Q1

REPORT INFORMATION
  Report Type: 
  Country: None (occurrence: None)
  Receive Date: 20100224
  Receipt Date: 20100208
  Transmission Date: 20100710
  Serious: Yes (Death, Life-Threatening, Hospitalization)
  Sender: FDA-Public Use
  Company Number: 2009-00041

PATIENT
  Age: 81 Year
  Sex: Female

DRUGS (5)
  1. SIMVASTATIN [Suspect]
     Indication: DRUG USE FOR UNKNOWN INDICATION
     Dosage: 40 MG, ORAL
     Route: 048
     Dates: end: 20081118
  2. FUSIDIC ACID [Suspect]
     Indication: STAPHYLOCOCCAL INFECTION
     Dosage: 500 MG (3 IN 1 D),ORAL
     Route: 048
     Dates: start: 20080801
  3. TRIMETHOPRIM [Suspect]
     Indication: STAPHYLOCOCCAL INFECTION
     Dosage: 200 MG (2 IN 1 D), ORAL
     Route: 048
     Dates: start: 20081001
  4. RAMIPRIL [Concomitant]
  5. BUMETANIDE [Concomitant]

REACTIONS (4)
  - DRUG INTERACTION [None]
  - RHABDOMYOLYSIS [None]
  - SEPSIS [None]
  - URINARY TRACT INFECTION [None]
